FAERS Safety Report 24984018 (Version 1)
Quarter: 2025Q1

REPORT INFORMATION
  Report Type: Spontaneous
  Country: RS (occurrence: RS)
  Receive Date: 20250219
  Receipt Date: 20250219
  Transmission Date: 20250408
  Serious: Yes (Other)
  Sender: TEVA
  Company Number: RS-TEVA-VS-3298589

PATIENT
  Age: 27 Year
  Sex: Female

DRUGS (1)
  1. COPAXONE [Suspect]
     Active Substance: GLATIRAMER ACETATE
     Indication: Product used for unknown indication
     Route: 065

REACTIONS (2)
  - Asphyxia [Unknown]
  - Injection site swelling [Unknown]
